FAERS Safety Report 11642181 (Version 2)
Quarter: 2015Q4

REPORT INFORMATION
  Report Type: Report from Study
  Country: CA (occurrence: CA)
  Receive Date: 20151019
  Receipt Date: 20151221
  Transmission Date: 20160304
  Serious: Yes (Death, Other)
  Sender: FDA-Public Use
  Company Number: CA-GILEAD-2015-0177433

PATIENT
  Age: 75 Year
  Sex: Male

DRUGS (7)
  1. LORAZEPAM. [Concomitant]
     Active Substance: LORAZEPAM
  2. TAMSULOSIN [Concomitant]
     Active Substance: TAMSULOSIN
  3. IDELALISIB [Suspect]
     Active Substance: IDELALISIB
     Indication: CHRONIC LYMPHOCYTIC LEUKAEMIA
     Dosage: 150 MG, BID
     Route: 048
     Dates: start: 20151007, end: 20151015
  4. METOPROLOL [Concomitant]
     Active Substance: METOPROLOL
  5. SIMVASTATIN. [Concomitant]
     Active Substance: SIMVASTATIN
  6. RITUXAN [Suspect]
     Active Substance: RITUXIMAB
     Indication: CHRONIC LYMPHOCYTIC LEUKAEMIA
     Dosage: UNK UNKNOWN, UNK
     Route: 065
  7. STATEX                             /00036302/ [Concomitant]
     Active Substance: MORPHINE SULFATE

REACTIONS (8)
  - Drug ineffective [Not Recovered/Not Resolved]
  - Disease progression [Not Recovered/Not Resolved]
  - Chills [Unknown]
  - Nasopharyngitis [Unknown]
  - Death [Fatal]
  - Platelet count decreased [Unknown]
  - Lymphocyte count decreased [Unknown]
  - Haemoglobin decreased [Unknown]

NARRATIVE: CASE EVENT DATE: 20151019
